FAERS Safety Report 5455183-1 (Version None)
Quarter: 2007Q3

REPORT INFORMATION
  Report Type: 
  Country: None (occurrence: None)
  Receive Date: 20070914
  Receipt Date: 20070830
  Transmission Date: 20080115
  Serious: Yes (Other)
  Sender: FDA-Public Use
  Company Number: 2007-04014

PATIENT
  Age: 7 Month
  Sex: Male

DRUGS (2)
  1. FERRLECIT (FERLIXIT) WATSON LABORATORIES(SODIUM FERRIC GLUCONATE) INJE [Suspect]
     Indication: IRON DEFICIENCY
     Dosage: 40 MG, SINGLE , INTRAVENOUS
     Route: 042
     Dates: start: 20070813, end: 20070813
  2. FERRLECIT (FERLIXIT) WATSON LABORATORIES(SODIUM FERRIC GLUCONATE) INJE [Suspect]
     Indication: IRON DEFICIENCY
     Dosage: 40 MG, SINGLE , INTRAVENOUS
     Route: 042
     Dates: start: 20070813, end: 20070813

REACTIONS (3)
  - BRADYCARDIA [None]
  - CRYING [None]
  - FLATULENCE [None]
